FAERS Safety Report 16008134 (Version 1)
Quarter: 2019Q1

REPORT INFORMATION
  Report Type: Report from Study
  Country: IT (occurrence: IT)
  Receive Date: 20190226
  Receipt Date: 20190226
  Transmission Date: 20190418
  Serious: Yes (Life-Threatening, Other)
  Sender: FDA-Public Use
  Company Number: IT-MYLANLABS-2019M1017754

PATIENT
  Age: 25 Year
  Sex: Female

DRUGS (10)
  1. MINOCYCLINE [Concomitant]
     Active Substance: MINOCYCLINE\MINOCYCLINE HYDROCHLORIDE
     Indication: BURKHOLDERIA CEPACIA COMPLEX INFECTION
     Route: 065
  2. CYCLOPHOSPHAMIDE. [Suspect]
     Active Substance: CYCLOPHOSPHAMIDE
     Indication: POST TRANSPLANT LYMPHOPROLIFERATIVE DISORDER
     Route: 065
  3. CYCLOSPORINE. [Suspect]
     Active Substance: CYCLOSPORINE
     Indication: IMMUNOSUPPRESSANT DRUG THERAPY
     Dosage: UNK
     Route: 065
  4. COTRIMOXAZOLE [Concomitant]
     Active Substance: SULFAMETHOXAZOLE\TRIMETHOPRIM
     Indication: BURKHOLDERIA CEPACIA COMPLEX INFECTION
     Route: 065
  5. PREDNISONE. [Suspect]
     Active Substance: PREDNISONE
     Indication: POST TRANSPLANT LYMPHOPROLIFERATIVE DISORDER
     Route: 065
  6. TACROLIMUS. [Suspect]
     Active Substance: TACROLIMUS
     Indication: IMMUNOSUPPRESSANT DRUG THERAPY
     Dosage: UNK
     Route: 065
  7. ONCOVIN [Suspect]
     Active Substance: VINCRISTINE SULFATE
     Indication: POST TRANSPLANT LYMPHOPROLIFERATIVE DISORDER
     Route: 065
  8. MEROPENEM. [Concomitant]
     Active Substance: MEROPENEM
     Indication: BURKHOLDERIA CEPACIA COMPLEX INFECTION
     Route: 065
  9. RITUXIMAB. [Suspect]
     Active Substance: RITUXIMAB
     Indication: POST TRANSPLANT LYMPHOPROLIFERATIVE DISORDER
     Route: 065
  10. DOXORUBICIN [Suspect]
     Active Substance: DOXORUBICIN
     Indication: POST TRANSPLANT LYMPHOPROLIFERATIVE DISORDER
     Route: 065

REACTIONS (3)
  - Neutropenia [Unknown]
  - Post transplant lymphoproliferative disorder [Unknown]
  - Anaemia [Unknown]
